FAERS Safety Report 6462730-X (Version None)
Quarter: 2009Q4

REPORT INFORMATION
  Report Type: 
  Country: None (occurrence: None)
  Receive Date: 20091130
  Receipt Date: 20091118
  Transmission Date: 20100525
  Serious: Yes (Hospitalization, Other)
  Sender: FDA-Public Use
  Company Number: US-WYE-H12219809

PATIENT
  Sex: Female
  Weight: 111.23 kg

DRUGS (7)
  1. PRISTIQ [Suspect]
     Indication: DEPRESSION
     Route: 048
     Dates: start: 20080601
  2. PRISTIQ [Suspect]
     Dosage: DOSE INCREASED
     Route: 048
     Dates: end: 20090501
  3. PRISTIQ [Suspect]
     Dosage: TAKING 200 MG, MAYBE 250 MG DAILY
     Route: 048
     Dates: start: 20090501, end: 20091001
  4. PRISTIQ [Suspect]
     Dosage: STARTED TAKING 50 MG DAILY THEN GRADUALLY INCREASED TO 200 MG DAILY
     Route: 048
     Dates: start: 20091101
  5. RITALIN [Concomitant]
  6. PROSOM [Concomitant]
  7. AMBIEN [Concomitant]

REACTIONS (7)
  - DRUG INEFFECTIVE [None]
  - EXCESSIVE EYE BLINKING [None]
  - HALLUCINATION, AUDITORY [None]
  - SUICIDAL IDEATION [None]
  - THERAPEUTIC RESPONSE UNEXPECTED [None]
  - TREATMENT NONCOMPLIANCE [None]
  - UNEVALUABLE EVENT [None]
